FAERS Safety Report 12442326 (Version 1)
Quarter: 2016Q2

REPORT INFORMATION
  Report Type: Spontaneous
  Country: US (occurrence: US)
  Receive Date: 20160607
  Receipt Date: 20160607
  Transmission Date: 20160815
  Serious: No
  Sender: FDA-Public Use
  Company Number: US-ELI_LILLY_AND_COMPANY-US201605007861

PATIENT
  Sex: Female

DRUGS (3)
  1. INVOKANA [Concomitant]
     Active Substance: CANAGLIFLOZIN
  2. LANTUS [Concomitant]
     Active Substance: INSULIN GLARGINE
  3. TRULICITY [Suspect]
     Active Substance: DULAGLUTIDE
     Indication: TYPE 2 DIABETES MELLITUS
     Dosage: 0.75 MG, WEEKLY (1/W)
     Route: 058
     Dates: start: 20160226

REACTIONS (2)
  - Injection site pain [Recovered/Resolved]
  - Injection site mass [Recovered/Resolved]

NARRATIVE: CASE EVENT DATE: 20160519
